FAERS Safety Report 24882251 (Version 3)
Quarter: 2025Q1

REPORT INFORMATION
  Report Type: Report from Study
  Country: US (occurrence: US)
  Receive Date: 20250124
  Receipt Date: 20250206
  Transmission Date: 20250409
  Serious: Yes (Other)
  Sender: ABBVIE
  Company Number: US-ABBVIE-6099169

PATIENT
  Age: 56 Year
  Sex: Female
  Weight: 94 kg

DRUGS (3)
  1. SKYRIZI [Suspect]
     Active Substance: RISANKIZUMAB-RZAA
     Indication: Psoriasis
     Route: 058
     Dates: start: 20240902
  2. PREDNISONE [Concomitant]
     Active Substance: PREDNISONE
     Indication: Psoriasis
  3. SULINDAC [Concomitant]
     Active Substance: SULINDAC
     Indication: Psoriasis

REACTIONS (2)
  - Knee arthroplasty [Recovering/Resolving]
  - Skin exfoliation [Recovered/Resolved]

NARRATIVE: CASE EVENT DATE: 20240101
